FAERS Safety Report 8136383-9 (Version None)
Quarter: 2012Q1

REPORT INFORMATION
  Report Type: 
  Country: None (occurrence: None)
  Receive Date: 20120214
  Receipt Date: 20120207
  Transmission Date: 20120608
  Serious: Yes (Hospitalization, Other)
  Sender: FDA-Public Use
  Company Number: BR-ABBOTT-11P-020-0716695-00

PATIENT
  Sex: Female
  Weight: 55 kg

DRUGS (8)
  1. HUMIRA [Suspect]
     Indication: PSORIASIS
     Dosage: INDUCTION DOSE
     Route: 058
     Dates: start: 20090113
  2. HUMIRA [Suspect]
     Dosage: INDUCTION DOSE
     Route: 058
     Dates: start: 20090128
  3. HUMIRA [Suspect]
     Route: 058
  4. HUMIRA [Suspect]
     Route: 058
     Dates: start: 20100908
  5. HUMIRA [Suspect]
     Dates: start: 20110201
  6. ISONIAZID [Concomitant]
     Indication: ANTIBIOTIC PROPHYLAXIS
     Dosage: 3 TABLETS IN THE MORNING
     Dates: start: 20110801
  7. ISONIAZID [Suspect]
     Indication: TUBERCULOSIS
     Route: 048
     Dates: start: 20101025
  8. ETHAMBUTOL HYDROCHLORIDE [Suspect]
     Indication: TUBERCULOSIS
     Route: 048
     Dates: start: 20101025

REACTIONS (11)
  - ABDOMINAL PAIN [None]
  - PSORIASIS [None]
  - CROHN'S DISEASE [None]
  - WEIGHT DECREASED [None]
  - INFLUENZA [None]
  - ASTHENIA [None]
  - PULMONARY TUBERCULOSIS [None]
  - LOWER RESPIRATORY TRACT INFECTION [None]
  - PYREXIA [None]
  - BLOOD GLUCOSE INCREASED [None]
  - DYSPHONIA [None]
